FAERS Safety Report 9746423 (Version 4)
Quarter: 2014Q2

REPORT INFORMATION
  Report Type: Report from Study
  Country: FR (occurrence: FR)
  Receive Date: 20131211
  Receipt Date: 20140609
  Transmission Date: 20141212
  Serious: Yes (Hospitalization)
  Sender: FDA-Public Use
  Company Number: FR-VIIV HEALTHCARE LIMITED-B0952233A

PATIENT
  Age: 60 Year
  Sex: Male
  Weight: 118 kg

DRUGS (7)
  1. MARAVIROC [Suspect]
     Indication: HIV INFECTION
     Dosage: 150MG TWICE PER DAY
     Dates: start: 20080417
  2. PREZISTA [Concomitant]
     Indication: HIV INFECTION
     Dosage: 600MG TWICE PER DAY
     Route: 048
     Dates: start: 20080417
  3. RITONAVIR [Concomitant]
     Indication: HIV INFECTION
     Dosage: 100MG TWICE PER DAY
     Route: 048
     Dates: start: 20080417
  4. RALTEGRAVIR [Concomitant]
     Indication: HIV INFECTION
     Dosage: 400MG TWICE PER DAY
     Route: 048
     Dates: start: 20080417
  5. FENOFIBRATE [Concomitant]
     Dosage: 145MG PER DAY
  6. GABAPENTIN [Concomitant]
     Dosage: 5CAP PER DAY
  7. ACETYLSALICYLIC ACID [Concomitant]
     Dosage: 75MG PER DAY

REACTIONS (1)
  - Nodule [Not Recovered/Not Resolved]
